FAERS Safety Report 5774652-8 (Version None)
Quarter: 2008Q2

REPORT INFORMATION
  Report Type: 
  Country: None (occurrence: None)
  Receive Date: 20080616
  Receipt Date: 20080603
  Transmission Date: 20081010
  Serious: Yes (Other)
  Sender: FDA-Public Use
  Company Number: IL-GENENTECH-262422

PATIENT
  Sex: Female
  Weight: 72.5 kg

DRUGS (4)
  1. BEVACIZUMAB [Suspect]
     Indication: BREAST CANCER METASTATIC
     Dosage: 15 MG/KG, Q3W
     Route: 042
     Dates: start: 20070327
  2. BONEFOS [Suspect]
     Indication: DRUG USE FOR UNKNOWN INDICATION
     Dosage: 1600 A?G, QD
     Dates: start: 20001101, end: 20080402
  3. DOCETAXEL [Concomitant]
     Indication: DRUG USE FOR UNKNOWN INDICATION
     Dates: start: 20071113
  4. TAXOL [Concomitant]
     Indication: DRUG USE FOR UNKNOWN INDICATION
     Dosage: UNK, UNK
     Dates: start: 20070327, end: 20071106

REACTIONS (1)
  - OSTEONECROSIS [None]
